FAERS Safety Report 5767792-0 (Version None)
Quarter: 2008Q2

REPORT INFORMATION
  Report Type: 
  Country: None (occurrence: None)
  Receive Date: 20080612
  Receipt Date: 20080605
  Transmission Date: 20081010
  Serious: Yes (Other)
  Sender: FDA-Public Use
  Company Number: US-BAXTER-2008BH005885

PATIENT
  Age: 75 Year
  Sex: Male

DRUGS (5)
  1. HEPARIN SODIUM INJECTION [Suspect]
     Indication: THROMBOSIS PROPHYLAXIS
     Dosage: DOSE UNIT:UNKNOWN
     Route: 058
  2. HEPARIN SODIUM 5,000 UNITS IN DEXTROSE 5% [Suspect]
     Indication: DEEP VEIN THROMBOSIS
     Dosage: DOSE UNIT:UNKNOWN
     Route: 041
  3. SOLU-MEDROL [Concomitant]
     Indication: PROPHYLAXIS
     Dosage: DOSE UNIT:UNKNOWN
     Route: 065
  4. BACTRIM [Concomitant]
     Indication: PROPHYLAXIS
     Dosage: DOSE UNIT:UNKNOWN
     Route: 065
  5. LISINOPRIL [Concomitant]
     Indication: CORONARY ARTERY DISEASE
     Dosage: DOSE UNIT:UNKNOWN
     Route: 065

REACTIONS (2)
  - HYPERKALAEMIA [None]
  - UPPER GASTROINTESTINAL HAEMORRHAGE [None]
